FAERS Safety Report 4809224-2 (Version None)
Quarter: 2005Q4

REPORT INFORMATION
  Report Type: 
  Country: None (occurrence: None)
  Receive Date: 20051021
  Receipt Date: 20051010
  Transmission Date: 20060501
  Serious: Yes (Hospitalization)
  Sender: FDA-Public Use
  Company Number: 2005RR-00894

PATIENT
  Age: 68 Year
  Sex: Female

DRUGS (5)
  1. PREDNISONE [Suspect]
     Indication: ASTHMA
     Dosage: 20 MG, QD
  2. METFORMIN HCL [Suspect]
  3. THEOPHYLLINE [Suspect]
  4. MONTELUKAST(MONTELUKAST) [Suspect]
     Dosage: 10 MG, QD
  5. FLIXOTIDE(FLUTICASONE) [Suspect]

REACTIONS (4)
  - ESCHERICHIA INFECTION [None]
  - PERITONEAL ABSCESS [None]
  - PERITONITIS BACTERIAL [None]
  - WHITE BLOOD CELL COUNT INCREASED [None]
